FAERS Safety Report 11637223 (Version 3)
Quarter: 2016Q1

REPORT INFORMATION
  Report Type: Spontaneous
  Country: US (occurrence: US)
  Receive Date: 20151016
  Receipt Date: 20160301
  Transmission Date: 20160525
  Serious: Yes (Death, Life-Threatening, Hospitalization)
  Sender: FDA-Public Use
  Company Number: US-BAYER-2015-442784

PATIENT
  Age: 42 Year
  Sex: Female

DRUGS (1)
  1. GADAVIST [Suspect]
     Active Substance: GADOBUTROL
     Indication: NUCLEAR MAGNETIC RESONANCE IMAGING BRAIN
     Dosage: 8 ML, UNK
     Dates: start: 20150917, end: 20150917

REACTIONS (4)
  - Nausea [None]
  - Cardio-respiratory arrest [None]
  - Death [Fatal]
  - Unresponsive to stimuli [None]

NARRATIVE: CASE EVENT DATE: 20150917
